FAERS Safety Report 4880593-0 (Version None)
Quarter: 2005Q4

REPORT INFORMATION
  Report Type: 
  Country: None (occurrence: None)
  Receive Date: 20051223
  Receipt Date: 20051118
  Transmission Date: 20060501
  Serious: No
  Sender: FDA-Public Use
  Company Number: 05P-163-0317633-00

PATIENT
  Age: 52 Year
  Sex: Male
  Weight: 87.9978 kg

DRUGS (8)
  1. HUMIRA [Suspect]
     Indication: RHEUMATOID ARTHRITIS
     Dosage: 40  MG, 1 IN 2 WK, SUBCUTANEOUS
     Route: 058
     Dates: start: 20040401
  2. LEFLUNOMIDE [Concomitant]
  3. PREDNISONE [Concomitant]
  4. POTASSIUM CHLORIDE [Concomitant]
  5. BISELECT [Concomitant]
  6. ALPRAZOLAM [Concomitant]
  7. BAYER BABY ASPIRIN [Concomitant]
  8. MULTIVITAMIN [Concomitant]

REACTIONS (3)
  - CONDITION AGGRAVATED [None]
  - RHEUMATOID ARTHRITIS [None]
  - TENDON INJURY [None]
